FAERS Safety Report 4370136-2 (Version None)
Quarter: 2004Q2

REPORT INFORMATION
  Report Type: 
  Country: None (occurrence: None)
  Receive Date: 20040603
  Receipt Date: 20040420
  Transmission Date: 20050107
  Serious: No
  Sender: FDA-Public Use
  Company Number: US-BRISTOL-MYERS SQUIBB COMPANY-12565594

PATIENT
  Age: 31 Year
  Sex: Male
  Weight: 70 kg

DRUGS (3)
  1. ABILIFY [Suspect]
     Indication: SCHIZOPHRENIA
     Dosage: INITIATED AT 15 MG/DAY, REDUCED TO 10 MG/DAY, AND REDUCED ON 20-APR-2004 TO 5 MG/DAY.
     Route: 048
     Dates: start: 20040329
  2. PROZAC [Concomitant]
  3. CLOZARIL [Concomitant]
     Dates: end: 20040417

REACTIONS (1)
  - DYSURIA [None]
